FAERS Safety Report 8847619 (Version 1)
Quarter: 2012Q4

REPORT INFORMATION
  Report Type: 
  Country: US (occurrence: US)
  Receive Date: 20121018
  Receipt Date: 20121018
  Transmission Date: 20130627
  Serious: No
  Sender: FDA-Public Use
  Company Number: US-ASTRAZENECA-2012SE76964

PATIENT
  Age: 22 Year
  Sex: Female
  Weight: 54.4 kg

DRUGS (5)
  1. RHINOCORT AQUA [Suspect]
     Indication: ASTHMA
     Route: 045
     Dates: start: 2011, end: 201209
  2. SINGULAR [Concomitant]
     Indication: ASTHMA
  3. ASMANEX [Concomitant]
     Indication: ASTHMA
  4. BIRTH CONTROL PILL [Concomitant]
     Indication: CONTRACEPTIVE CAP
  5. ALBUTEROL [Concomitant]
     Indication: ASTHMA

REACTIONS (5)
  - Pain [Not Recovered/Not Resolved]
  - Sinusitis [Not Recovered/Not Resolved]
  - Sinus headache [Not Recovered/Not Resolved]
  - Epistaxis [Not Recovered/Not Resolved]
  - Drug dose omission [Unknown]
